FAERS Safety Report 19506374 (Version 3)
Quarter: 2021Q3

REPORT INFORMATION
  Report Type: Spontaneous
  Country: IN (occurrence: IN)
  Receive Date: 20210708
  Receipt Date: 20210812
  Transmission Date: 20211014
  Serious: Yes (Death, Life-Threatening, Hospitalization, Other)
  Sender: FDA-Public Use
  Company Number: IN-ACCORD-231134

PATIENT
  Age: 70 Year
  Sex: Male

DRUGS (4)
  1. GLIMEPIRIDE. [Concomitant]
     Active Substance: GLIMEPIRIDE
     Indication: DIABETES MELLITUS
     Dates: end: 20200212
  2. CAPECITABINE. [Suspect]
     Active Substance: CAPECITABINE
     Indication: PANCREATIC CARCINOMA
     Dosage: TWICE DAILY
     Route: 048
     Dates: start: 20200201, end: 20200210
  3. AMLODIPINE [Concomitant]
     Active Substance: AMLODIPINE BESYLATE
     Indication: HYPERTENSION
  4. ISOPHANE INSULIN [Concomitant]
     Active Substance: INSULIN NOS
     Indication: DIABETES MELLITUS
     Dosage: INSULIN ISOPHANE  70 % ?INSULIN HUMAN 30 %, SQ 24 U?0 30U
     Route: 058
     Dates: end: 20200212

REACTIONS (10)
  - Conjunctival erosion [Unknown]
  - Stevens-Johnson syndrome [Fatal]
  - Candida infection [Unknown]
  - Unresponsive to stimuli [Fatal]
  - Conjunctival haemorrhage [Unknown]
  - Drug hypersensitivity [Fatal]
  - Mouth haemorrhage [Not Recovered/Not Resolved]
  - Mouth ulceration [Unknown]
  - Blood glucose increased [Unknown]
  - Renal impairment [Fatal]

NARRATIVE: CASE EVENT DATE: 202002
